FAERS Safety Report 5568548-4 (Version None)
Quarter: 2007Q4

REPORT INFORMATION
  Report Type: 
  Country: None (occurrence: None)
  Receive Date: 20071130
  Receipt Date: 20070416
  Transmission Date: 20080405
  Serious: Yes (Disabling, Other)
  Sender: FDA-Public Use
  Company Number: WAES 0607USA02530

PATIENT
  Age: 57 Year
  Sex: Female

DRUGS (12)
  1. FOSAMAX [Suspect]
     Dosage: 70 MG WKY PO
     Route: 048
     Dates: start: 20010101, end: 20060629
  2. ARAVA [Concomitant]
  3. PLAVIX [Concomitant]
  4. SEREVENT [Concomitant]
  5. SPIRIVA [Concomitant]
  6. VICODIN ES [Concomitant]
  7. ZAROXOLYN [Concomitant]
  8. FUROSEMIDE [Concomitant]
  9. LISINOPRIL [Concomitant]
  10. LOVASTATIN [Concomitant]
  11. METHOTREXATE [Concomitant]
  12. POTASSIUM CHLORIDE [Concomitant]

REACTIONS (7)
  - BACK PAIN [None]
  - DIARRHOEA [None]
  - DYSURIA [None]
  - EMPHYSEMA [None]
  - LUNG NEOPLASM [None]
  - OSTEOMYELITIS [None]
  - OSTEONECROSIS [None]
